FAERS Safety Report 18742024 (Version 2)
Quarter: 2021Q1

REPORT INFORMATION
  Report Type: Spontaneous
  Country: US (occurrence: US)
  Receive Date: 20210114
  Receipt Date: 20210120
  Transmission Date: 20210419
  Serious: Yes (Death)
  Sender: FDA-Public Use
  Company Number: US-PFIZER INC-2021020769

PATIENT
  Age: 20 Year
  Sex: Male

DRUGS (1)
  1. DROPERIDOL. [Suspect]
     Active Substance: DROPERIDOL
     Dosage: 5 MG
     Route: 030

REACTIONS (1)
  - Cardio-respiratory arrest [Fatal]
